FAERS Safety Report 12608463 (Version 1)
Quarter: 2016Q3

REPORT INFORMATION
  Report Type: Report from Study
  Country: US (occurrence: US)
  Receive Date: 20160729
  Receipt Date: 20160729
  Transmission Date: 20161109
  Serious: Yes (Other)
  Sender: FDA-Public Use
  Company Number: PHEH2016US018675

PATIENT
  Sex: Female
  Weight: 74.83 kg

DRUGS (1)
  1. GILENYA [Suspect]
     Active Substance: FINGOLIMOD HYDROCHLORIDE
     Indication: MULTIPLE SCLEROSIS
     Dosage: 0.5 MG, QD
     Route: 048
     Dates: start: 20160130

REACTIONS (5)
  - Colitis [Recovering/Resolving]
  - Asthenia [Recovering/Resolving]
  - Gastric disorder [Recovering/Resolving]
  - Diarrhoea [Recovering/Resolving]
  - Melaena [Recovering/Resolving]
